FAERS Safety Report 13540299 (Version 1)
Quarter: 2017Q2

REPORT INFORMATION
  Report Type: Spontaneous
  Country: DE (occurrence: DE)
  Receive Date: 20170512
  Receipt Date: 20170512
  Transmission Date: 20170830
  Serious: Yes (Hospitalization)
  Sender: FDA-Public Use
  Company Number: DE-SEPTODONT-201704006

PATIENT
  Age: 73 Year
  Sex: Female

DRUGS (1)
  1. SEPTANEST MIT EPINEPHRIN 40 MG/ML + 0.005 MG/ML, INJEKTIONSL?SUNG [Suspect]
     Active Substance: ARTICAINE\EPINEPHRINE
     Indication: LOCAL ANAESTHESIA
     Route: 004
     Dates: start: 20170124

REACTIONS (2)
  - Acute vestibular syndrome [Unknown]
  - Dizziness [Unknown]

NARRATIVE: CASE EVENT DATE: 20170125
